FAERS Safety Report 16630948 (Version 10)
Quarter: 2023Q1

REPORT INFORMATION
  Report Type: Report from Study
  Country: CO (occurrence: CO)
  Receive Date: 20190725
  Receipt Date: 20230224
  Transmission Date: 20230418
  Serious: Yes (Other)
  Sender: FDA-Public Use
  Company Number: PHHY2018CO055420

PATIENT
  Sex: Female
  Weight: 67 kg

DRUGS (13)
  1. TASIGNA [Suspect]
     Active Substance: NILOTINIB
     Indication: Chronic myeloid leukaemia
     Dosage: 800 MG QD
     Route: 048
     Dates: start: 20151002
  2. TASIGNA [Suspect]
     Active Substance: NILOTINIB
     Dosage: 800 MG QD
     Route: 048
     Dates: start: 20151020
  3. TASIGNA [Suspect]
     Active Substance: NILOTINIB
     Dosage: 800 MG, QD
     Route: 048
  4. TASIGNA [Suspect]
     Active Substance: NILOTINIB
     Dosage: 800 MG, QD
     Route: 048
     Dates: start: 2016
  5. TASIGNA [Suspect]
     Active Substance: NILOTINIB
     Dosage: 800 MG, QD
     Route: 048
  6. TASIGNA [Suspect]
     Active Substance: NILOTINIB
     Dosage: UNK
     Route: 048
  7. CARVEDILOL [Suspect]
     Active Substance: CARVEDILOL
     Indication: Arrhythmia
     Dosage: 12.5 MG
     Route: 048
  8. THYROXINE [Concomitant]
     Active Substance: LEVOTHYROXINE
     Indication: Hyperthyroidism
     Dosage: 100 MG, QD
     Route: 048
  9. METOPROLOL [Concomitant]
     Active Substance: METOPROLOL
     Indication: Hypertension
     Dosage: 100 MG, Q12H (EVERY 12 HOURS) (1 WITH BREAKFAST AND 1 AT NIGHT)
     Route: 048
     Dates: start: 20150917
  10. METOPROLOL [Concomitant]
     Active Substance: METOPROLOL
     Indication: Arrhythmia
  11. CIRUELAX [Concomitant]
     Indication: Constipation
     Dosage: UNK, QHS (AT NIGHT)
     Route: 048
  12. LEVOTHYROXINE [Concomitant]
     Active Substance: LEVOTHYROXINE
     Indication: Hypothyroidism
     Dosage: 100 MG
     Route: 048
  13. ASPIRIN [Concomitant]
     Active Substance: ASPIRIN
     Indication: Product used for unknown indication
     Dosage: UNK
     Route: 048

REACTIONS (17)
  - Arterial occlusive disease [Unknown]
  - Pain in extremity [Unknown]
  - Gait disturbance [Recovering/Resolving]
  - Poor peripheral circulation [Recovering/Resolving]
  - Dysphagia [Unknown]
  - Influenza [Unknown]
  - Contusion [Unknown]
  - Serum ferritin increased [Unknown]
  - Neck pain [Unknown]
  - Peripheral swelling [Unknown]
  - Investigation abnormal [Unknown]
  - Discomfort [Unknown]
  - Cough [Unknown]
  - Arthralgia [Not Recovered/Not Resolved]
  - Haemoglobin decreased [Unknown]
  - Incorrect dose administered [Unknown]
  - Product prescribing error [Unknown]
